FAERS Safety Report 9626932 (Version 1)
Quarter: 2013Q4

REPORT INFORMATION
  Report Type: Spontaneous
  Country: US (occurrence: US)
  Receive Date: 20131016
  Receipt Date: 20131016
  Transmission Date: 20140711
  Serious: Yes (Other)
  Sender: FDA-Public Use
  Company Number: US-BAYER-2013-124246

PATIENT
  Age: 74 Year
  Sex: Male

DRUGS (2)
  1. XOFIGO [Suspect]
     Indication: PROSTATE CANCER
     Dosage: 3 INJECTIONS AS OF 04-OCT-2013
     Route: 042
     Dates: start: 201307, end: 20131004
  2. XOFIGO [Suspect]
     Indication: METASTASES TO BONE

REACTIONS (5)
  - Nausea [Not Recovered/Not Resolved]
  - Back pain [Not Recovered/Not Resolved]
  - Arthralgia [Not Recovered/Not Resolved]
  - Musculoskeletal pain [None]
  - Eating disorder [Not Recovered/Not Resolved]
